FAERS Safety Report 18890794 (Version 10)
Quarter: 2021Q1

REPORT INFORMATION
  Report Type: Report from Study
  Country: None (occurrence: ES)
  Receive Date: 20210215
  Receipt Date: 20210325
  Transmission Date: 20210420
  Serious: Yes (Death, Hospitalization, Other)
  Sender: FDA-Public Use
  Company Number: ES-ABBVIE-21K-144-3774045-00

PATIENT
  Age: 72 Year
  Sex: Female
  Weight: 61 kg

DRUGS (2)
  1. DUODOPA [Suspect]
     Active Substance: CARBIDOPA\LEVODOPA
  2. DUODOPA [Suspect]
     Active Substance: CARBIDOPA\LEVODOPA
     Indication: PARKINSON^S DISEASE
     Route: 050
     Dates: start: 20191004

REACTIONS (27)
  - Stoma site discharge [Unknown]
  - Bedridden [Unknown]
  - Ascites [Unknown]
  - Depressed mood [Unknown]
  - Off label use [Unknown]
  - Hypophagia [Unknown]
  - Constipation [Recovered/Resolved]
  - Asthenia [Unknown]
  - Device breakage [Unknown]
  - Unevaluable event [Recovered/Resolved]
  - Colon cancer [Fatal]
  - Terminal state [Unknown]
  - Abdominal rigidity [Unknown]
  - Constipation [Unknown]
  - Pyrexia [Not Recovered/Not Resolved]
  - Neoplasm [Unknown]
  - Discouragement [Unknown]
  - Faecaloma [Unknown]
  - Device occlusion [Unknown]
  - Secretion discharge [Unknown]
  - Malaise [Unknown]
  - Abdominal pain [Recovering/Resolving]
  - Nausea [Not Recovered/Not Resolved]
  - General physical health deterioration [Unknown]
  - Parkinson^s disease [Unknown]
  - Abdominal distension [Unknown]
  - Expired device used [Recovered/Resolved]

NARRATIVE: CASE EVENT DATE: 2021
